FAERS Safety Report 19856893 (Version 1)
Quarter: 2021Q3

REPORT INFORMATION
  Report Type: Spontaneous
  Country: IR (occurrence: IR)
  Receive Date: 20210920
  Receipt Date: 20210920
  Transmission Date: 20211014
  Serious: Yes (Disabling, Other)
  Sender: FDA-Public Use
  Company Number: IR-FRESENIUS KABI-FK202110041

PATIENT
  Age: 15 Year
  Sex: Female

DRUGS (5)
  1. CHARCOAL, ACTIVATED [Concomitant]
     Active Substance: ACTIVATED CHARCOAL
     Indication: TOXICITY TO VARIOUS AGENTS
     Route: 065
  2. ACETYLCYSTEINE (MANUFACTURER UNKNOWN) [Suspect]
     Active Substance: ACETYLCYSTEINE
     Dosage: IN 500ML DEXTROSE 5 PERCENT
     Route: 042
  3. ACETYLCYSTEINE (MANUFACTURER UNKNOWN) [Suspect]
     Active Substance: ACETYLCYSTEINE
     Dosage: 450MG MAINTENANCE DOSE BEFORE DISCONTINUATION
     Route: 042
  4. GLUCOSE [Concomitant]
     Active Substance: DEXTROSE
     Indication: TOXICITY TO VARIOUS AGENTS
     Dosage: DILUENT FOR NAC 5MG/KG
     Route: 065
  5. ACETYLCYSTEINE (MANUFACTURER UNKNOWN) [Suspect]
     Active Substance: ACETYLCYSTEINE
     Indication: TOXICITY TO VARIOUS AGENTS
     Route: 042

REACTIONS (4)
  - Acute kidney injury [Not Recovered/Not Resolved]
  - Medication error [Recovered/Resolved with Sequelae]
  - Accidental overdose [Recovered/Resolved with Sequelae]
  - Haemolytic uraemic syndrome [Not Recovered/Not Resolved]
